FAERS Safety Report 8118642-9 (Version None)
Quarter: 2012Q1

REPORT INFORMATION
  Report Type: 
  Country: None (occurrence: None)
  Receive Date: 20120207
  Receipt Date: 20120130
  Transmission Date: 20120608
  Serious: Yes (Hospitalization)
  Sender: FDA-Public Use
  Company Number: US-BAYER-201039588NA

PATIENT
  Age: 28 Year
  Sex: Female

DRUGS (4)
  1. LISINOPRIL [Concomitant]
  2. MEDROXYPROGESTERONE [Concomitant]
  3. YASMIN [Suspect]
     Dates: start: 20050601, end: 20051001
  4. METFORMIN HCL [Concomitant]

REACTIONS (2)
  - PULMONARY EMBOLISM [None]
  - DEEP VEIN THROMBOSIS [None]
